FAERS Safety Report 8135844-6 (Version None)
Quarter: 2012Q1

REPORT INFORMATION
  Report Type: 
  Country: None (occurrence: None)
  Receive Date: 20120214
  Receipt Date: 20111025
  Transmission Date: 20120608
  Serious: Yes (Other)
  Sender: FDA-Public Use
  Company Number: FR-GLAXOSMITHKLINE-A0950563A

PATIENT
  Sex: Male

DRUGS (1)
  1. ELTROMBOPAG [Suspect]
     Dosage: 25MG PER DAY
     Route: 048
     Dates: end: 20090403

REACTIONS (2)
  - MACULOPATHY [None]
  - CATARACT [None]
